FAERS Safety Report 5731487-X (Version None)
Quarter: 2008Q2

REPORT INFORMATION
  Report Type: 
  Country: None (occurrence: None)
  Receive Date: 20080508
  Receipt Date: 20080506
  Transmission Date: 20081010
  Serious: Yes (Other)
  Sender: FDA-Public Use
  Company Number: PHEH2008US03516

PATIENT
  Age: 49 Year
  Sex: Male

DRUGS (5)
  1. TRILEPTAL [Suspect]
     Indication: CONVULSION
     Dosage: 300 MG, BID
     Dates: start: 20070401
  2. ACETAMINOPHEN [Concomitant]
     Dosage: UNK, PRN
  3. NYSTATIN [Concomitant]
  4. HYDROXYZINE [Concomitant]
  5. ATACAND [Concomitant]

REACTIONS (1)
  - BLOOD POTASSIUM INCREASED [None]
